FAERS Safety Report 6667992-1 (Version None)
Quarter: 2010Q2

REPORT INFORMATION
  Report Type: 
  Country: None (occurrence: None)
  Receive Date: 20100401
  Receipt Date: 20100323
  Transmission Date: 20101027
  Serious: Yes (Other)
  Sender: FDA-Public Use
  Company Number: 2010SP017434

PATIENT
  Sex: Female
  Weight: 2.6 kg

DRUGS (2)
  1. DEXAMETHASONE [Suspect]
     Indication: PROPHYLAXIS
     Dosage: TRPL
     Route: 064
  2. DEXAMETHASONE [Suspect]
     Indication: THROMBOCYTOPENIA NEONATAL
     Dosage: TRPL
     Route: 064

REACTIONS (4)
  - CAESAREAN SECTION [None]
  - CEREBRAL CYST [None]
  - CEREBRAL HAEMORRHAGE FOETAL [None]
  - MATERNAL DRUGS AFFECTING FOETUS [None]
